FAERS Safety Report 20843966 (Version 1)
Quarter: 2022Q2

REPORT INFORMATION
  Report Type: Report from Study
  Country: IT (occurrence: IT)
  Receive Date: 20220518
  Receipt Date: 20220518
  Transmission Date: 20220721
  Serious: Yes (Hospitalization)
  Sender: FDA-Public Use
  Company Number: None

PATIENT
  Age: 63 Year
  Sex: Male

DRUGS (6)
  1. QUETIAPINE [Suspect]
     Active Substance: QUETIAPINE
     Dosage: UNIT DOSE: 100 MG, FREQUENCY TIME : 1 DAY, DURATION : 73 DAYS
     Dates: start: 20220101, end: 20220315
  2. VALIUM [Suspect]
     Active Substance: DIAZEPAM
     Dosage: UNIT DOSE: 32 GTT, STRENGTH: 5 MG/ML, FREQUENCY TIME : 1 DAY, DURATION : 73 DAYS
     Dates: start: 20220101, end: 20220315
  3. VALPROIC ACID [Suspect]
     Active Substance: VALPROIC ACID
     Dosage: EXTENDED RELEASE TABLETS, UNIT DOSE: 300 MG, STRENGTH: 300 MG, FREQUENCY TIME : 1 DAY, DURATION : 73
     Dates: start: 20220101, end: 20220315
  4. HALOPERIDOL [Concomitant]
     Active Substance: HALOPERIDOL
     Dosage: UNIT DOSE: 35 GTT
  5. LOPERAMIDE [Concomitant]
     Active Substance: LOPERAMIDE
     Dosage: UNIT DOSE: 2 MG
  6. BISOLVON [Concomitant]
     Active Substance: BROMHEXINE HYDROCHLORIDE
     Dosage: STRENGTH: 2 MG/ML

REACTIONS (1)
  - Sopor [Not Recovered/Not Resolved]

NARRATIVE: CASE EVENT DATE: 20220315
